FAERS Safety Report 20425386 (Version 1)
Quarter: 2022Q1

REPORT INFORMATION
  Report Type: Report from Study
  Country: US (occurrence: US)
  Receive Date: 20220204
  Receipt Date: 20220204
  Transmission Date: 20220424
  Serious: No
  Sender: FDA-Public Use
  Company Number: US-EXELIXIS-CABO-21038583

PATIENT
  Sex: Male

DRUGS (1)
  1. CABOMETYX [Suspect]
     Active Substance: CABOZANTINIB S-MALATE
     Indication: Renal cancer
     Dosage: 40 MG, QD
     Route: 048
     Dates: start: 20210215

REACTIONS (10)
  - Vision blurred [Unknown]
  - Infection [Unknown]
  - Disturbance in attention [Unknown]
  - Hair growth abnormal [Unknown]
  - Blister [Unknown]
  - Visual impairment [Unknown]
  - Alopecia [Unknown]
  - Headache [Unknown]
  - Fatigue [Recovered/Resolved]
  - Palmar-plantar erythrodysaesthesia syndrome [Unknown]
